FAERS Safety Report 6552022-2 (Version None)
Quarter: 2010Q1

REPORT INFORMATION
  Report Type: 
  Country: None (occurrence: None)
  Receive Date: 20100126
  Receipt Date: 20100119
  Transmission Date: 20100710
  Serious: Yes (Life-Threatening)
  Sender: FDA-Public Use
  Company Number: JP-WYE-H12434109

PATIENT
  Sex: Male
  Weight: 45 kg

DRUGS (32)
  1. ZOSYN [Suspect]
     Indication: PNEUMONIA ASPIRATION
     Route: 041
     Dates: start: 20090220, end: 20090224
  2. MARZULENE S [Concomitant]
     Indication: DRUG USE FOR UNKNOWN INDICATION
     Route: 048
     Dates: start: 20090216, end: 20090222
  3. MUCODYNE [Concomitant]
     Indication: DRUG USE FOR UNKNOWN INDICATION
     Route: 048
     Dates: start: 20090216, end: 20090222
  4. URSO 250 [Concomitant]
     Indication: DRUG USE FOR UNKNOWN INDICATION
     Route: 048
     Dates: start: 20090216, end: 20090222
  5. BAKUMONDOUTO [Concomitant]
     Indication: DRUG USE FOR UNKNOWN INDICATION
     Route: 048
     Dates: start: 20090216, end: 20090222
  6. OMEPRAL [Concomitant]
     Indication: DRUG USE FOR UNKNOWN INDICATION
     Route: 041
     Dates: start: 20090216, end: 20090226
  7. ADONA [Concomitant]
     Indication: DRUG USE FOR UNKNOWN INDICATION
     Route: 041
     Dates: start: 20090222, end: 20090223
  8. RIKAVERIN [Concomitant]
     Indication: DRUG USE FOR UNKNOWN INDICATION
     Route: 041
     Dates: start: 20090222, end: 20090223
  9. ALEVIATIN [Concomitant]
     Indication: DRUG USE FOR UNKNOWN INDICATION
     Route: 041
     Dates: start: 20090223, end: 20090226
  10. SOLCOSERYL [Concomitant]
     Indication: DRUG USE FOR UNKNOWN INDICATION
     Route: 041
     Dates: start: 20090223, end: 20090226
  11. AMINO ACIDS NOS/CARBOHYDRATES NOS/ELECTROLYTES NOS [Concomitant]
     Indication: DRUG USE FOR UNKNOWN INDICATION
     Route: 041
     Dates: start: 20090224, end: 20090226
  12. ZINC SULFATE [Concomitant]
     Indication: DRUG USE FOR UNKNOWN INDICATION
     Route: 041
     Dates: start: 20090224, end: 20090226
  13. MANGANESE CHLORIDE [Concomitant]
     Indication: DRUG USE FOR UNKNOWN INDICATION
     Route: 041
     Dates: start: 20000224, end: 20090226
  14. SODIUM CHLORIDE [Concomitant]
     Indication: DRUG USE FOR UNKNOWN INDICATION
     Dosage: UNKNOWN
     Route: 041
     Dates: start: 20090213
  15. ALLOID [Concomitant]
     Indication: DRUG USE FOR UNKNOWN INDICATION
     Dosage: 30-40 ML/DAY
     Route: 048
     Dates: start: 20090216, end: 20090222
  16. ALUMINUM HYDROXIDE/MAGNESIUM HYDROXIDE [Concomitant]
     Indication: DRUG USE FOR UNKNOWN INDICATION
     Dosage: 30-40 ML/DAY
     Route: 048
     Dates: start: 20090216, end: 20090222
  17. TAKEPRON [Concomitant]
     Indication: DRUG USE FOR UNKNOWN INDICATION
     Route: 048
     Dates: start: 20090220, end: 20090222
  18. LIDOMEX [Concomitant]
     Indication: DRUG USE FOR UNKNOWN INDICATION
     Dosage: UNKNOWN
  19. GASMOTIN [Concomitant]
     Indication: DRUG USE FOR UNKNOWN INDICATION
     Route: 048
     Dates: start: 20090213, end: 20090222
  20. PETROLATUM [Concomitant]
     Indication: DRUG USE FOR UNKNOWN INDICATION
     Dosage: UNKNOWN
  21. TERRA-CORTRIL [Concomitant]
     Indication: DRUG USE FOR UNKNOWN INDICATION
     Dosage: UNKNOWN
  22. HIRUDOID [Concomitant]
     Indication: DRUG USE FOR UNKNOWN INDICATION
     Dosage: UNKNOWN
  23. POTASSIUM PHOSPHATE DIBASIC [Concomitant]
     Indication: DRUG USE FOR UNKNOWN INDICATION
     Dosage: UNKNOWN
     Route: 048
  24. GENTAMICIN [Concomitant]
     Indication: DRUG USE FOR UNKNOWN INDICATION
     Dosage: UNKNOWN
  25. BROMFENAC SODIUM [Concomitant]
     Indication: DRUG USE FOR UNKNOWN INDICATION
     Dosage: UNKNOWN
  26. KN-MG3 [Concomitant]
     Indication: DRUG USE FOR UNKNOWN INDICATION
     Route: 041
     Dates: start: 20090214, end: 20090223
  27. VITAMEDIN [Concomitant]
     Indication: DRUG USE FOR UNKNOWN INDICATION
     Dosage: 1V/DAY
     Route: 041
     Dates: start: 20090214, end: 20090223
  28. VITAMINS [Concomitant]
     Indication: DRUG USE FOR UNKNOWN INDICATION
     Route: 041
     Dates: start: 20090224, end: 20090226
  29. VITAMINS [Concomitant]
     Route: 041
     Dates: start: 20090215, end: 20090223
  30. AMINO ACIDS NOS/CARBOHYDRATES NOS/ELECTROLYTES NOS [Concomitant]
     Route: 041
     Dates: start: 20090215, end: 20090223
  31. MAXIPIME [Concomitant]
     Indication: PNEUMONIA ASPIRATION
     Route: 041
     Dates: start: 20090213, end: 20090220
  32. DEPAKENE [Concomitant]
     Indication: DRUG USE FOR UNKNOWN INDICATION
     Route: 048
     Dates: start: 20090216, end: 20090222

REACTIONS (8)
  - ANAEMIA [None]
  - DIALYSIS [None]
  - HAEMORRHAGIC DIATHESIS [None]
  - HEPATITIS FULMINANT [None]
  - INTERNATIONAL NORMALISED RATIO INCREASED [None]
  - OESOPHAGEAL HAEMORRHAGE [None]
  - PLEURAL EFFUSION [None]
  - RENAL FAILURE ACUTE [None]
